FAERS Safety Report 13822797 (Version 2)
Quarter: 2017Q3

REPORT INFORMATION
  Report Type: Spontaneous
  Country: ES (occurrence: ES)
  Receive Date: 20170801
  Receipt Date: 20170830
  Transmission Date: 20171127
  Serious: Yes (Other)
  Sender: FDA-Public Use
  Company Number: ES-ABBVIE-17P-144-1988236-00

PATIENT
  Age: 68 Year
  Sex: Male

DRUGS (3)
  1. DEPAKINE CRONO [Suspect]
     Active Substance: VALPROIC ACID
     Route: 048
     Dates: start: 20170724
  2. PANTOPRAZOLE [Concomitant]
     Active Substance: PANTOPRAZOLE
     Indication: PRODUCT USED FOR UNKNOWN INDICATION
  3. DEPAKINE CRONO [Suspect]
     Active Substance: VALPROIC ACID
     Indication: PARTIAL SEIZURES
     Dosage: EXTENDED RELEASE TABLET
     Route: 048
     Dates: start: 201703, end: 201707

REACTIONS (5)
  - Drug level decreased [Unknown]
  - Medication residue present [Unknown]
  - Petit mal epilepsy [Recovered/Resolved]
  - Drug ineffective [Unknown]
  - Wrong technique in product usage process [Unknown]

NARRATIVE: CASE EVENT DATE: 2017
